FAERS Safety Report 20606814 (Version 1)
Quarter: 2022Q1

REPORT INFORMATION
  Report Type: Spontaneous
  Country: None (occurrence: US)
  Receive Date: 20220317
  Receipt Date: 20220317
  Transmission Date: 20220423
  Serious: No
  Sender: FDA-Public Use
  Company Number: US-Person and Covey-2126873

PATIENT
  Sex: Female

DRUGS (1)
  1. DAILY FACIAL MOISTURIZER SPF 25 [Suspect]
     Active Substance: AVOBENZONE\HOMOSALATE\OCTINOXATE\OCTOCRYLENE
     Indication: Rash pruritic
     Route: 003
     Dates: start: 20220212, end: 20220212

REACTIONS (1)
  - Rash pruritic [Recovering/Resolving]

NARRATIVE: CASE EVENT DATE: 20220212
